FAERS Safety Report 5115124-3 (Version None)
Quarter: 2006Q3

REPORT INFORMATION
  Report Type: 
  Country: None (occurrence: None)
  Receive Date: 20060925
  Receipt Date: 20060925
  Transmission Date: 20061208
  Serious: Yes (Other)
  Sender: FDA-Public Use
  Company Number: None

PATIENT
  Age: 19 Year
  Sex: Female
  Weight: 50.0771 kg

DRUGS (2)
  1. SEROQUEL [Suspect]
     Indication: ANXIETY
     Dosage: 50    TID + PRN    PO
     Route: 048
     Dates: start: 20060822, end: 20060917
  2. REGLAN [Suspect]
     Indication: ABDOMINAL DISCOMFORT
     Dosage: 10 MG A DAY   TID   PO
     Route: 048
     Dates: start: 20060831, end: 20060917

REACTIONS (2)
  - MUSCLE TWITCHING [None]
  - MYOCLONUS [None]
